FAERS Safety Report 8030715-8 (Version None)
Quarter: 2012Q1

REPORT INFORMATION
  Report Type: 
  Country: None (occurrence: None)
  Receive Date: 20120109
  Receipt Date: 20120103
  Transmission Date: 20120608
  Serious: Yes (Disabling)
  Sender: FDA-Public Use
  Company Number: PHHY2011CA106812

PATIENT
  Sex: Female

DRUGS (1)
  1. GILENYA [Suspect]
     Indication: RELAPSING-REMITTING MULTIPLE SCLEROSIS
     Dosage: 0.5 MG, DAILY
     Route: 048
     Dates: start: 20111114

REACTIONS (6)
  - VERTIGO [None]
  - NAUSEA [None]
  - BALANCE DISORDER [None]
  - FATIGUE [None]
  - DIZZINESS [None]
  - STRABISMUS [None]
